FAERS Safety Report 6357201-5 (Version None)
Quarter: 2009Q3

REPORT INFORMATION
  Report Type: 
  Country: None (occurrence: None)
  Receive Date: 20090911
  Receipt Date: 20090901
  Transmission Date: 20100115
  Serious: Yes (Other)
  Sender: FDA-Public Use
  Company Number: SPV1-2009-01780

PATIENT
  Age: 13 Year
  Sex: Male
  Weight: 71.2 kg

DRUGS (1)
  1. ADDERALL 10 [Suspect]
     Indication: ATTENTION DEFICIT/HYPERACTIVITY DISORDER
     Dosage: 10 MG, OTHER (ONLY WEEKDAYS), ORAL
     Route: 048

REACTIONS (10)
  - ABDOMINAL PAIN UPPER [None]
  - DIZZINESS [None]
  - FALL [None]
  - HEADACHE [None]
  - HYPERHIDROSIS [None]
  - INJURY [None]
  - MYALGIA [None]
  - SKELETAL INJURY [None]
  - SYNCOPE [None]
  - UPPER LIMB FRACTURE [None]
